FAERS Safety Report 6933110-5 (Version None)
Quarter: 2010Q3

REPORT INFORMATION
  Report Type: 
  Country: None (occurrence: None)
  Receive Date: 20100819
  Receipt Date: 20100813
  Transmission Date: 20110219
  Serious: Yes (Other)
  Sender: FDA-Public Use
  Company Number: FR-BRISTOL-MYERS SQUIBB COMPANY-15242647

PATIENT
  Age: 21 Year
  Sex: Female

DRUGS (3)
  1. REYATAZ [Suspect]
     Route: 048
     Dates: start: 20100201, end: 20100325
  2. TRUVADA [Suspect]
     Dosage: TABS;1DF:200 MG/245 MG
     Route: 048
     Dates: start: 20100201, end: 20100325
  3. NORVIR [Suspect]
     Dosage: 1 CAPSULE
     Dates: start: 20100201, end: 20100325

REACTIONS (1)
  - CYTOLYTIC HEPATITIS [None]
